FAERS Safety Report 14113548 (Version 3)
Quarter: 2018Q1

REPORT INFORMATION
  Report Type: Spontaneous
  Country: GB (occurrence: GB)
  Receive Date: 20171023
  Receipt Date: 20180228
  Transmission Date: 20180508
  Serious: Yes (Other)
  Sender: FDA-Public Use
  Company Number: GB-BIOGEN-2017BI00473153

PATIENT
  Age: 30 Year
  Sex: Male

DRUGS (2)
  1. TECFIDERA [Suspect]
     Active Substance: DIMETHYL FUMARATE
     Indication: MULTIPLE SCLEROSIS
     Route: 065
     Dates: start: 20150101
  2. TECFIDERA [Suspect]
     Active Substance: DIMETHYL FUMARATE
     Dosage: MAITNENANCE DOSE
     Route: 048
     Dates: start: 20160101

REACTIONS (2)
  - Multiple sclerosis relapse [Unknown]
  - Osteonecrosis [Not Recovered/Not Resolved]

NARRATIVE: CASE EVENT DATE: 20150101
